FAERS Safety Report 22941240 (Version 2)
Quarter: 2025Q3

REPORT INFORMATION
  Report Type: Spontaneous
  Country: US (occurrence: US)
  Receive Date: 20230913
  Receipt Date: 20250927
  Transmission Date: 20251021
  Serious: No
  Sender: SANOFI AVENTIS
  Company Number: US-SA-SAC20230911000353

PATIENT
  Age: 37 Year
  Sex: Female

DRUGS (1)
  1. DUPIXENT [Suspect]
     Active Substance: DUPILUMAB
     Indication: Nasal polyps
     Dosage: 300 MG, QOW
     Route: 058
     Dates: start: 20231010

REACTIONS (5)
  - Endometriosis [Unknown]
  - Allergic sinusitis [Unknown]
  - Sinusitis [Recovering/Resolving]
  - Rash [Unknown]
  - Sinus operation [Unknown]

NARRATIVE: CASE EVENT DATE: 20250101
